FAERS Safety Report 24548029 (Version 1)
Quarter: 2024Q4

REPORT INFORMATION
  Report Type: Spontaneous
  Country: US (occurrence: US)
  Receive Date: 20241025
  Receipt Date: 20241025
  Transmission Date: 20250115
  Serious: Yes (Hospitalization, Other)
  Sender: NOVITIUM PHARMA
  Company Number: US-NOVITIUMPHARMA-2024USNVP02351

PATIENT
  Age: 49 Year
  Sex: Female

DRUGS (2)
  1. PREDNISONE [Suspect]
     Active Substance: PREDNISONE
     Indication: Product used for unknown indication
  2. LUPKYINS [Concomitant]
     Indication: Lupus nephritis
     Route: 048
     Dates: start: 20210630

REACTIONS (4)
  - Thrombocytopenia [Unknown]
  - Cellulitis [Unknown]
  - Pain in extremity [Recovered/Resolved]
  - Insomnia [Unknown]
